FAERS Safety Report 8451233 (Version 3)
Quarter: 2012Q4

REPORT INFORMATION
  Report Type: 
  Country: GB (occurrence: GB)
  Receive Date: 20120309
  Receipt Date: 20120927
  Transmission Date: 20130627
  Serious: Yes (Death, Hospitalization, Other)
  Sender: FDA-Public Use
  Company Number: PHFR2012GB001093

PATIENT
  Age: 70 Year
  Sex: Male

DRUGS (10)
  1. CLOZARIL [Suspect]
     Indication: HALLUCINATION
     Dosage: UNK UKN, UNK
     Route: 048
     Dates: start: 20051021, end: 20120205
  2. CLOZARIL [Suspect]
     Dosage: 12.5 mg, UNK
     Route: 048
  3. PARACETAMOL [Concomitant]
     Indication: PAIN
  4. GABAPENTIN [Concomitant]
     Indication: PAIN
     Dosage: 100 mg, UNK
  5. SIMVASTATIN [Concomitant]
     Indication: BLOOD CHOLESTEROL
     Dosage: 40 mg, UNK
  6. MADOPAR [Concomitant]
     Indication: PARKINSON^S DISEASE
     Dosage: 62.5 mg, UNK
  7. EPHEDRINE [Concomitant]
     Indication: BLOOD PRESSURE
     Dosage: 15 mg, Three times
  8. PRAMIPEXOLE [Concomitant]
     Indication: PARKINSON^S DISEASE
     Dosage: 0.36 mg, UNK
  9. LANSOPRAZOLE [Concomitant]
     Dosage: 30 mg, UNK
  10. CODEINE PHOSPHATE [Concomitant]
     Indication: PAIN
     Dosage: 30-60 mg, QID

REACTIONS (12)
  - Parkinson^s disease [Fatal]
  - Fall [Recovering/Resolving]
  - Circulatory collapse [Recovering/Resolving]
  - Lower respiratory tract infection [Recovering/Resolving]
  - Osteoporosis [Not Recovered/Not Resolved]
  - Altered state of consciousness [Recovered/Resolved]
  - Platelet count decreased [Recovered/Resolved]
  - Malaise [Unknown]
  - Dysphagia [Unknown]
  - Thrombocytopenia [None]
  - Loss of consciousness [None]
  - Sudden death [None]
